FAERS Safety Report 16322611 (Version 3)
Quarter: 2019Q2

REPORT INFORMATION
  Report Type: Report from Study
  Country: US (occurrence: US)
  Receive Date: 20190516
  Receipt Date: 20190619
  Transmission Date: 20190711
  Serious: Yes (Other)
  Sender: FDA-Public Use
  Company Number: US-ACTELION-A-US2018-171760

PATIENT
  Age: 70 Year
  Sex: Female
  Weight: 124.72 kg

DRUGS (10)
  1. OPSUMIT [Suspect]
     Active Substance: MACITENTAN
     Indication: PULMONARY ARTERIAL HYPERTENSION
     Dosage: 10 MG, QD
     Route: 048
  2. UPTRAVI [Suspect]
     Active Substance: SELEXIPAG
     Indication: PULMONARY ARTERIAL HYPERTENSION
     Dosage: 1200 MCG BID
     Route: 048
     Dates: start: 20190306
  3. UPTRAVI [Suspect]
     Active Substance: SELEXIPAG
     Dosage: 1200 MCG, BID
     Route: 048
     Dates: start: 20190420
  4. UPTRAVI [Suspect]
     Active Substance: SELEXIPAG
     Dosage: 1200 MCG AM/1400 MCG PM
     Route: 048
  5. UPTRAVI [Suspect]
     Active Substance: SELEXIPAG
     Dosage: 1400 MCG, BID
     Route: 048
     Dates: start: 20190406
  6. UPTRAVI [Suspect]
     Active Substance: SELEXIPAG
     Dosage: 600 MCG, BID
     Route: 048
  7. UPTRAVI [Suspect]
     Active Substance: SELEXIPAG
     Dosage: 1600 MCG, BID
     Route: 048
  8. ELIQUIS [Concomitant]
     Active Substance: APIXABAN
  9. UPTRAVI [Suspect]
     Active Substance: SELEXIPAG
     Dosage: 1000 MCG, BID
     Route: 048
  10. UPTRAVI [Suspect]
     Active Substance: SELEXIPAG
     Dosage: 1400 MCG, QAM/1600 MCG, QPM
     Route: 048

REACTIONS (23)
  - Pulmonary arterial hypertension [Unknown]
  - Neck pain [Unknown]
  - Pain in jaw [Unknown]
  - Ill-defined disorder [Unknown]
  - Peripheral swelling [Unknown]
  - Pain [Unknown]
  - Feeling abnormal [Unknown]
  - Back pain [Unknown]
  - Ear pain [Recovering/Resolving]
  - Condition aggravated [Unknown]
  - Constipation [Unknown]
  - Oropharyngeal pain [Recovering/Resolving]
  - Poor quality sleep [Unknown]
  - Musculoskeletal pain [Unknown]
  - Spinal operation [Unknown]
  - Abdominal distension [Unknown]
  - Depression [Unknown]
  - Headache [Recovering/Resolving]
  - Malaise [Unknown]
  - Joint stiffness [Unknown]
  - Bronchitis [Unknown]
  - Insurance issue [Unknown]
  - Nausea [Unknown]

NARRATIVE: CASE EVENT DATE: 20190314
